FAERS Safety Report 8410729 (Version 2)
Quarter: 2012Q4

REPORT INFORMATION
  Report Type: 
  Country: US (occurrence: US)
  Receive Date: 20120217
  Receipt Date: 20120926
  Transmission Date: 20130627
  Serious: Yes (Hospitalization, Other)
  Sender: FDA-Public Use
  Company Number: US-BAYER-2012-015780

PATIENT
  Age: 25 Year
  Sex: Female
  Weight: 52.15 kg

DRUGS (4)
  1. YASMIN [Suspect]
     Dosage: UNK
     Dates: start: 200709, end: 201005
  2. OCELLA [Suspect]
     Dosage: UNK
     Dates: start: 200709, end: 201005
  3. CIPROFLOXACIN HCL [Concomitant]
     Dosage: 500 mg, UNK
     Dates: start: 20100220
  4. PROMETHAZINE [Concomitant]
     Dosage: 25 mg, UNK
     Dates: start: 20100220

REACTIONS (5)
  - Cholecystitis chronic [None]
  - Gallbladder disorder [None]
  - Pain [None]
  - Injury [None]
  - Mental disorder [None]
